FAERS Safety Report 5163969-6 (Version None)
Quarter: 2006Q4

REPORT INFORMATION
  Report Type: 
  Country: None (occurrence: None)
  Receive Date: 20061124
  Receipt Date: 20061109
  Transmission Date: 20070319
  Serious: Yes (Death)
  Sender: FDA-Public Use
  Company Number: 2006138250

PATIENT
  Age: 52 Year

DRUGS (4)
  1. ALPRAZOLAM [Suspect]
  2. TRAZODONE HCL [Suspect]
  3. ACETAMINOPHEN [Suspect]
  4. ALL OTHER THERAPEUTIC PRODUCTS (ALL OTHER THERAPEUTIC PRODUCTS) [Suspect]

REACTIONS (2)
  - COMPLETED SUICIDE [None]
  - EXPOSURE TO TOXIC AGENT [None]
